FAERS Safety Report 9508697 (Version 1)
Quarter: 2013Q3

REPORT INFORMATION
  Report Type: Spontaneous
  Country: US (occurrence: US)
  Receive Date: 20130909
  Receipt Date: 20130909
  Transmission Date: 20140515
  Serious: Yes (Hospitalization)
  Sender: FDA-Public Use
  Company Number: US-GLAXOSMITHKLINE-A1040676A

PATIENT
  Age: 55 Year
  Sex: Female

DRUGS (2)
  1. ARIXTRA [Suspect]
     Indication: INTRACARDIAC THROMBUS
     Dosage: 10MG UNKNOWN
     Route: 042
  2. COREG [Suspect]
     Indication: INTRACARDIAC THROMBUS
     Dosage: 3.125MG UNKNOWN
     Route: 065

REACTIONS (1)
  - Intracardiac thrombus [Unknown]
